FAERS Safety Report 11073719 (Version 2)
Quarter: 2015Q2

REPORT INFORMATION
  Report Type: Report from Study
  Country: NL (occurrence: NL)
  Receive Date: 20150428
  Receipt Date: 20150522
  Transmission Date: 20150821
  Serious: Yes (Other)
  Sender: FDA-Public Use
  Company Number: PHHY2015NL045575

PATIENT
  Age: 61 Year
  Sex: Male

DRUGS (1)
  1. SANDOSTATIN LAR DEPOT [Suspect]
     Active Substance: OCTREOTIDE ACETATE
     Indication: ACROMEGALY
     Dosage: 10 MG, EVERY 28 DAYS
     Route: 065

REACTIONS (2)
  - Tendon rupture [Unknown]
  - Musculoskeletal pain [Not Recovered/Not Resolved]

NARRATIVE: CASE EVENT DATE: 20141220
